FAERS Safety Report 7217051-4 (Version None)
Quarter: 2011Q1

REPORT INFORMATION
  Report Type: 
  Country: None (occurrence: None)
  Receive Date: 20110110
  Receipt Date: 20101230
  Transmission Date: 20110831
  Serious: Yes (Hospitalization)
  Sender: FDA-Public Use
  Company Number: FR-MILLENNIUM PHARMACEUTICALS, INC.-2010-02913

PATIENT

DRUGS (7)
  1. ASPIRIN [Concomitant]
     Indication: CEREBROVASCULAR ACCIDENT
  2. KARDEGIC                           /00002703/ [Concomitant]
     Dosage: 75 MG, UNK
     Route: 048
     Dates: start: 20080101
  3. CORDARONE [Concomitant]
     Indication: CARDIAC DISORDER
     Dosage: 200 MG, UNK
     Route: 048
  4. VELCADE [Suspect]
     Indication: MULTIPLE MYELOMA
     Dosage: 2.5 MG, UNK
     Route: 042
     Dates: start: 20100201, end: 20100510
  5. DEXAMETHASONE [Concomitant]
     Dosage: 40 MG, UNK
     Route: 048
     Dates: start: 20100504, end: 20100509
  6. DEXAMETHASONE [Concomitant]
     Indication: MULTIPLE MYELOMA
     Dosage: 160 MG, UNK
     Route: 048
     Dates: start: 20100201, end: 20100503
  7. ACTISKENAN [Concomitant]
     Indication: ANALGESIC THERAPY
     Dosage: 40 MG, UNK
     Route: 048
     Dates: start: 20100510

REACTIONS (3)
  - GENERAL PHYSICAL HEALTH DETERIORATION [None]
  - ORTHOSTATIC HYPOTENSION [None]
  - ATRIAL FIBRILLATION [None]
